FAERS Safety Report 16072567 (Version 1)
Quarter: 2019Q1

REPORT INFORMATION
  Report Type: Spontaneous
  Country: US (occurrence: US)
  Receive Date: 20190314
  Receipt Date: 20190314
  Transmission Date: 20190418
  Serious: No
  Sender: FDA-Public Use
  Company Number: US-LEXICON PHARMACEUTICALS, INC-19-1606-00254

PATIENT
  Sex: Female

DRUGS (10)
  1. TELOTRISTAT ETHYL [Suspect]
     Active Substance: TELOTRISTAT ETHYL
     Indication: NEUROENDOCRINE TUMOUR
     Route: 048
     Dates: start: 20190214
  2. TESSALON [Concomitant]
     Active Substance: BENZONATATE
  3. TELOTRISTAT ETHYL [Suspect]
     Active Substance: TELOTRISTAT ETHYL
     Indication: METASTASES TO BILIARY TRACT
  4. TELOTRISTAT ETHYL [Suspect]
     Active Substance: TELOTRISTAT ETHYL
     Indication: METASTASES TO LIVER
  5. SANDOSTATIN [Concomitant]
     Active Substance: OCTREOTIDE ACETATE
  6. XARELTO [Concomitant]
     Active Substance: RIVAROXABAN
  7. SYNTHROID [Concomitant]
     Active Substance: LEVOTHYROXINE SODIUM
  8. COZAAR [Concomitant]
     Active Substance: LOSARTAN POTASSIUM
  9. TELOTRISTAT ETHYL [Suspect]
     Active Substance: TELOTRISTAT ETHYL
     Indication: RENAL CELL CARCINOMA
  10. NORVASC [Concomitant]
     Active Substance: AMLODIPINE BESYLATE

REACTIONS (4)
  - Off label use [Unknown]
  - Flushing [Not Recovered/Not Resolved]
  - Blood pressure increased [Not Recovered/Not Resolved]
  - Oedema peripheral [Not Recovered/Not Resolved]
